FAERS Safety Report 11227520 (Version 1)
Quarter: 2015Q2

REPORT INFORMATION
  Report Type: Spontaneous
  Country: DE (occurrence: DE)
  Receive Date: 20150630
  Receipt Date: 20150630
  Transmission Date: 20150821
  Serious: Yes (Congenital Anomaly)
  Sender: FDA-Public Use
  Company Number: DE-PFIZER INC-2015208522

PATIENT
  Age: 1 Day
  Sex: Male
  Weight: 2.8 kg

DRUGS (7)
  1. QUENSYL [Suspect]
     Active Substance: HYDROXYCHLOROQUINE
     Indication: RHEUMATOID ARTHRITIS
     Dosage: 200 MG, 2X/DAY, 0. - 38.1. GESTATIONAL WEEK
     Route: 064
     Dates: start: 20140317, end: 20141209
  2. SULFASALAZINE. [Suspect]
     Active Substance: SULFASALAZINE
     Indication: RHEUMATOID ARTHRITIS
     Dosage: 500 MG, 4X/DAY, 0. - 38.1. GESTATIONAL WEEK
     Route: 064
     Dates: start: 20140317, end: 20141209
  3. DECORTIN [Concomitant]
     Active Substance: PREDNISONE
     Dosage: 10 MG, DAILY, 13+0-14+6 GESTATIONAL WEEK
     Route: 064
     Dates: start: 2014, end: 2014
  4. DECORTIN [Concomitant]
     Active Substance: PREDNISONE
     Indication: RHEUMATOID ARTHRITIS
     Dosage: 7.5 MG, DAILY, 0-12+6 GESTATIONAL WEEK
     Route: 064
     Dates: start: 20140317
  5. CIMZIA [Concomitant]
     Active Substance: CERTOLIZUMAB PEGOL
     Indication: RHEUMATOID ARTHRITIS
     Dosage: 200 MG, UNK, 0. - 1.1. GESTATIONAL WEEK
     Route: 064
     Dates: start: 20140317, end: 20140325
  6. DECORTIN [Concomitant]
     Active Substance: PREDNISONE
     Dosage: 15 MG, DAILY, 15+0-38+1 GESTATIONAL WEEK
     Route: 064
     Dates: end: 20141209
  7. FOLIO FORTE [Concomitant]
     Active Substance: FOLIC ACID\VITAMINS
     Indication: PROPHYLAXIS OF NEURAL TUBE DEFECT
     Dosage: 0.8 MG, DAILY, 0. - 38.1. GESTATIONAL WEEK
     Route: 064
     Dates: start: 20140317, end: 20141209

REACTIONS (2)
  - Maternal exposure during pregnancy [Recovering/Resolving]
  - Talipes [Recovering/Resolving]

NARRATIVE: CASE EVENT DATE: 20141209
